FAERS Safety Report 4970325-X (Version None)
Quarter: 2006Q1

REPORT INFORMATION
  Report Type: 
  Country: None (occurrence: None)
  Receive Date: 20060331
  Receipt Date: 20050916
  Transmission Date: 20060701
  Serious: Yes (Other)
  Sender: FDA-Public Use
  Company Number: 2005BH001800

PATIENT
  Age: 81 Year
  Sex: Male
  Weight: 65 kg

DRUGS (12)
  1. ENDOBULIN/IVEEGAM S/D (IMMUNOGLOBULIN HUMAN NORMAL) [Suspect]
     Indication: SECONDARY IMMUNODEFICIENCY
     Dates: start: 20041111, end: 20041111
  2. ENDOBULIN/IVEEGAM S/D (IMMUNOGLOBULIN HUMAN NORMAL) [Suspect]
     Indication: SECONDARY IMMUNODEFICIENCY
     Dates: start: 20050114, end: 20050114
  3. ENDOBULIN/IVEEGAM S/D (IMMUNOGLOBULIN HUMAN NORMAL) [Suspect]
     Indication: SECONDARY IMMUNODEFICIENCY
     Dates: start: 20050216, end: 20050216
  4. ENDOBULIN/IVEEGAM S/D (IMMUNOGLOBULIN HUMAN NORMAL) [Suspect]
  5. ENDOBULIN/IVEEGAM S/D (IMMUNOGLOBULIN HUMAN NORMAL) [Suspect]
  6. ENDOBULIN/IVEEGAM S/D (IMMUNOGLOBULIN HUMAN NORMAL) [Suspect]
  7. ENDOBULIN/IVEEGAM S/D (IMMUNOGLOBULIN HUMAN NORMAL) [Suspect]
  8. NORMAL HUMAN IMMUNOGLOBULIN (NORMAL HUMAN IMMUNOGLOBULIN) [Suspect]
     Indication: SECONDARY IMMUNODEFICIENCY
     Dates: start: 20050316, end: 20050316
  9. NORMAL HUMAN IMMUNOGLOBULIN (NORMAL HUMAN IMMUNOGLOBULIN) [Suspect]
     Indication: SECONDARY IMMUNODEFICIENCY
     Dates: start: 20050413, end: 20050413
  10. NORMAL HUMAN IMMUNOGLOBULIN (NORMAL HUMAN IMMUNOGLOBULIN) [Suspect]
     Indication: SECONDARY IMMUNODEFICIENCY
     Dates: start: 20050816, end: 20050816
  11. NORMAL HUMAN IMMUNOGLOBULIN (NORMAL HUMAN IMMUNOGLOBULIN) [Suspect]
  12. NORMAL HUMAN IMMUNOGLOBULIN (NORMAL HUMAN IMMUNOGLOBULIN) [Suspect]

REACTIONS (2)
  - ENTERITIS [None]
  - HEPATITIS B [None]
